FAERS Safety Report 15897264 (Version 1)
Quarter: 2019Q1

REPORT INFORMATION
  Report Type: Spontaneous
  Country: US (occurrence: US)
  Receive Date: 20190131
  Receipt Date: 20190131
  Transmission Date: 20190417
  Serious: No
  Sender: FDA-Public Use
  Company Number: US-BIOMARINAP-US-2019-121632

PATIENT
  Sex: Male

DRUGS (1)
  1. PALYNZIQ [Suspect]
     Active Substance: PEGVALIASE-PQPZ
     Indication: PRODUCT USED FOR UNKNOWN INDICATION
     Dosage: 2.5 MILLIGRAM
     Route: 058
     Dates: start: 20190110

REACTIONS (5)
  - Injection site pruritus [Recovering/Resolving]
  - Abdominal pain upper [Unknown]
  - Injection site reaction [Unknown]
  - Injection site erythema [Unknown]
  - Injection site rash [Recovering/Resolving]
